FAERS Safety Report 7103334-5 (Version None)
Quarter: 2010Q4

REPORT INFORMATION
  Report Type: 
  Country: None (occurrence: None)
  Receive Date: 20101115
  Receipt Date: 20101102
  Transmission Date: 20110411
  Serious: Yes (Other)
  Sender: FDA-Public Use
  Company Number: PHHY2010JP52707

PATIENT
  Sex: Male

DRUGS (16)
  1. AFINITOR [Suspect]
     Indication: METASTATIC RENAL CELL CARCINOMA
     Dosage: 10MG DAILY
     Route: 048
     Dates: start: 20100312, end: 20100324
  2. AFINITOR [Suspect]
     Dosage: 10MG DAILY
     Route: 048
     Dates: start: 20100506, end: 20100529
  3. SUNITINIB MALATE [Concomitant]
     Indication: METASTATIC RENAL CELL CARCINOMA
     Dosage: UNK
     Route: 048
     Dates: start: 20090928, end: 20091204
  4. SORAFENIB TOSILATE [Concomitant]
     Indication: METASTATIC RENAL CELL CARCINOMA
     Dosage: UNK
     Route: 048
     Dates: start: 20091228, end: 20100310
  5. OXYCONTIN [Concomitant]
     Indication: METASTATIC RENAL CELL CARCINOMA
     Dosage: UNK
     Route: 048
     Dates: start: 20091228
  6. CALCIUM LACTATE AND PREPARATIONS [Concomitant]
     Indication: METASTATIC RENAL CELL CARCINOMA
     Dosage: UNK
     Route: 048
     Dates: start: 20091228
  7. DEPAS [Concomitant]
     Indication: AUTONOMIC NERVOUS SYSTEM IMBALANCE
     Dosage: UNK
     Route: 048
     Dates: start: 20091228
  8. PURSENNID [Concomitant]
     Indication: AUTONOMIC NERVOUS SYSTEM IMBALANCE
     Dosage: UNK
     Route: 048
     Dates: start: 20091228
  9. NORVASC [Concomitant]
     Dosage: UNK
     Route: 048
     Dates: start: 20100107, end: 20100324
  10. LOXONIN [Concomitant]
     Indication: METASTATIC RENAL CELL CARCINOMA
     Dosage: UNK
     Route: 048
     Dates: start: 20100107
  11. CYTOTEC [Concomitant]
     Dosage: UNK
     Route: 048
     Dates: start: 20100107
  12. BLOPRESS [Concomitant]
     Dosage: UNK
     Route: 048
     Dates: start: 20100125
  13. FERROUS CITRATE [Concomitant]
     Dosage: 200MG
     Route: 048
  14. LAC B [Concomitant]
     Dosage: 3G
     Route: 048
     Dates: start: 20100506
  15. LASIX [Concomitant]
     Dosage: 40MG
     Route: 048
     Dates: start: 20100506, end: 20100610
  16. KETOPROFEN [Concomitant]
     Dosage: UNK
     Route: 062
     Dates: start: 20100506

REACTIONS (2)
  - HAEMOGLOBIN DECREASED [None]
  - PLATELET COUNT DECREASED [None]
